FAERS Safety Report 24109895 (Version 1)
Quarter: 2024Q3

REPORT INFORMATION
  Report Type: Spontaneous
  Country: US (occurrence: None)
  Receive Date: 20240717
  Receipt Date: 20240717
  Transmission Date: 20241017
  Serious: Yes (Other)
  Sender: Public
  Company Number: None

PATIENT
  Age: 70 Year
  Sex: Female
  Weight: 82.35 kg

DRUGS (3)
  1. BACTRIM [Suspect]
     Active Substance: SULFAMETHOXAZOLE\TRIMETHOPRIM
     Indication: Urinary tract infection
     Dosage: OTHER QUANTITY : 1 TABLET(S);?FREQUENCY : TWICE A DAY;?
     Route: 048
     Dates: start: 20240628, end: 20240701
  2. LISINOPRIL [Concomitant]
     Active Substance: LISINOPRIL
  3. EZETIMIBE [Concomitant]
     Active Substance: EZETIMIBE

REACTIONS (9)
  - Nervousness [None]
  - Asthenia [None]
  - Disorientation [None]
  - Urticaria [None]
  - Contusion [None]
  - Arrhythmia [None]
  - Headache [None]
  - Myalgia [None]
  - Pyrexia [None]

NARRATIVE: CASE EVENT DATE: 20240701
